FAERS Safety Report 9619295 (Version 1)
Quarter: 2013Q4

REPORT INFORMATION
  Report Type: Spontaneous
  Country: GB (occurrence: GB)
  Receive Date: 20131014
  Receipt Date: 20131014
  Transmission Date: 20140711
  Serious: Yes (Other)
  Sender: FDA-Public Use
  Company Number: GB-NOVOPROD-389022

PATIENT
  Age: 68 Year
  Sex: Female
  Weight: 90 kg

DRUGS (2)
  1. VAGIFEM [Suspect]
     Indication: SKIN INJURY
     Dosage: 10 ?G 4 TIMES A WEEK
     Route: 067
     Dates: start: 20130824
  2. CLOBETASOL PROPIONATE [Concomitant]
     Indication: PRODUCT USED FOR UNKNOWN INDICATION

REACTIONS (2)
  - Muscle spasms [Recovering/Resolving]
  - Flatulence [Recovering/Resolving]
